FAERS Safety Report 11725504 (Version 1)
Quarter: 2015Q4

REPORT INFORMATION
  Report Type: Spontaneous
  Country: US (occurrence: US)
  Receive Date: 20151110
  Receipt Date: 20151110
  Transmission Date: 20160304
  Serious: No
  Sender: FDA-Public Use
  Company Number: US-ELI_LILLY_AND_COMPANY-US201109008797

PATIENT
  Age: 86 Year
  Sex: Female

DRUGS (1)
  1. FORTEO [Suspect]
     Active Substance: TERIPARATIDE
     Dosage: 20 UG, QD
     Route: 058
     Dates: start: 20110601

REACTIONS (6)
  - Abdominal discomfort [Unknown]
  - Foot fracture [Not Recovered/Not Resolved]
  - Nausea [Unknown]
  - Appetite disorder [Not Recovered/Not Resolved]
  - Decreased appetite [Unknown]
  - Ligament sprain [Unknown]

NARRATIVE: CASE EVENT DATE: 201109
